FAERS Safety Report 12964560 (Version 2)
Quarter: 2016Q4

REPORT INFORMATION
  Report Type: Spontaneous
  Country: AU (occurrence: AU)
  Receive Date: 20161122
  Receipt Date: 20161130
  Transmission Date: 20170207
  Serious: Yes (Other)
  Sender: FDA-Public Use
  Company Number: AU-PFIZER INC-2016540583

PATIENT
  Age: 1 Year
  Sex: Male

DRUGS (10)
  1. OCTREOTIDE ACETATE. [Suspect]
     Active Substance: OCTREOTIDE ACETATE
     Dosage: 27 UG/KG, DAILY
     Route: 058
  2. GLUCOSE [Concomitant]
     Active Substance: DEXTROSE
     Indication: HYPERINSULINISM
     Dosage: 12 MG/KG PER MIN
     Route: 042
  3. OCTREOTIDE ACETATE. [Suspect]
     Active Substance: OCTREOTIDE ACETATE
     Dosage: 37 UG/KG, DAILY
     Route: 058
  4. OCTREOTIDE ACETATE. [Suspect]
     Active Substance: OCTREOTIDE ACETATE
     Dosage: 36 UG/KG, DAILY
  5. SIROLIMUS. [Suspect]
     Active Substance: SIROLIMUS
     Indication: HYPERINSULINISM SYNDROME
     Dosage: 0.5 MG/M2, DAILY
  6. OCTREOTIDE ACETATE. [Suspect]
     Active Substance: OCTREOTIDE ACETATE
     Indication: HYPERINSULINISM SYNDROME
     Dosage: 26 UG/KG, DAILY
     Route: 058
  7. GLUCOSE [Concomitant]
     Active Substance: DEXTROSE
     Dosage: 3.5 MG/KG PER MINUTE
  8. SIROLIMUS. [Suspect]
     Active Substance: SIROLIMUS
     Dosage: 6 MG/M2, UNK
  9. DIAZOXIDE [Concomitant]
     Active Substance: DIAZOXIDE
     Indication: HYPERINSULINISM
     Dosage: 20 MG/KG, DAILY
  10. GLUCAGON. [Concomitant]
     Active Substance: GLUCAGON
     Indication: HYPERINSULINISM
     Dosage: UNK
     Route: 041

REACTIONS (2)
  - Failure to thrive [Unknown]
  - Product use issue [Unknown]
